FAERS Safety Report 9613308 (Version 1)
Quarter: 2013Q4

REPORT INFORMATION
  Report Type: Spontaneous
  Country: FR (occurrence: FR)
  Receive Date: 20131010
  Receipt Date: 20131010
  Transmission Date: 20140711
  Serious: Yes (Other)
  Sender: FDA-Public Use
  Company Number: FR-BRISTOL-MYERS SQUIBB COMPANY-19473750

PATIENT
  Sex: Male

DRUGS (1)
  1. YERVOY [Suspect]

REACTIONS (2)
  - Ascites [Unknown]
  - Oedema [Unknown]
